FAERS Safety Report 8032913 (Version 3)
Quarter: 2014Q1

REPORT INFORMATION
  Report Type: Spontaneous
  Country: US (occurrence: US)
  Receive Date: 20110713
  Receipt Date: 20140102
  Transmission Date: 20141002
  Serious: Yes (Hospitalization)
  Sender: FDA-Public Use
  Company Number: US-BAYER-2011-059477

PATIENT
  Age: 16 Year
  Sex: Female
  Weight: 54.42 kg

DRUGS (4)
  1. OCELLA [Suspect]
     Indication: PREMENSTRUAL SYNDROME
  2. PREVACID [Concomitant]
     Route: 048
  3. LOTRAN [Concomitant]
     Dosage: 4 MG, UNK
     Route: 048
     Dates: start: 20091021
  4. ZOFRAN [Concomitant]

REACTIONS (10)
  - Gallbladder disorder [None]
  - Irritable bowel syndrome [None]
  - Abdominal pain upper [None]
  - Nausea [None]
  - Vomiting [None]
  - Abdominal pain [None]
  - Anxiety [None]
  - Anhedonia [None]
  - Mental disorder [None]
  - Mental disorder [None]
